FAERS Safety Report 8018902-6 (Version None)
Quarter: 2012Q1

REPORT INFORMATION
  Report Type: 
  Country: None (occurrence: None)
  Receive Date: 20120103
  Receipt Date: 20111229
  Transmission Date: 20120608
  Serious: Yes (Other)
  Sender: FDA-Public Use
  Company Number: US-PFIZER INC-2011317211

PATIENT
  Sex: Male
  Weight: 73.016 kg

DRUGS (4)
  1. CHANTIX [Suspect]
     Dosage: UNK
     Dates: start: 20111201, end: 20111223
  2. CHANTIX [Suspect]
     Indication: SMOKING CESSATION THERAPY
     Dosage: 0.5 MG, DAILY
     Dates: start: 20111201, end: 20111201
  3. IBUPROFEN [Concomitant]
     Indication: BACK DISORDER
     Dosage: 300 MG, ONE OR TWO TIMES A WEEK AS NEEDED
  4. ASPIRIN [Concomitant]
     Indication: BACK DISORDER
     Dosage: 325 MG, 3X/WEEK

REACTIONS (4)
  - AGGRESSION [None]
  - SLEEP DISORDER [None]
  - OBSESSIVE THOUGHTS [None]
  - PARANOIA [None]
